FAERS Safety Report 24083353 (Version 1)
Quarter: 2024Q3

REPORT INFORMATION
  Report Type: Spontaneous
  Country: US (occurrence: US)
  Receive Date: 20240712
  Receipt Date: 20240712
  Transmission Date: 20241016
  Serious: Yes (Life-Threatening, Hospitalization)
  Sender: MYLAN
  Company Number: US-MYLANLABS-2024M1064088

PATIENT
  Age: 24 Year
  Sex: Male

DRUGS (6)
  1. BIVALIRUDIN [Suspect]
     Active Substance: BIVALIRUDIN
     Indication: Thrombosis prophylaxis
     Dosage: DOSE: 0.05UNITS/KG/H
     Route: 065
  2. BIVALIRUDIN [Suspect]
     Active Substance: BIVALIRUDIN
     Indication: Anticoagulant therapy
  3. HEPARIN [Suspect]
     Active Substance: HEPARIN SODIUM
     Indication: Thrombosis prophylaxis
     Dosage: INITIAL DOSE: 8UNITS/KG/H
     Route: 042
  4. HEPARIN [Suspect]
     Active Substance: HEPARIN SODIUM
     Indication: Anticoagulant therapy
     Dosage: DOSE WAS INCREASED TO 9 UNITS/KG/H; TOTAL INITIAL HEPARIN THERAPY DURATION WAS 8 DAYS
     Route: 042
  5. HEPARIN [Suspect]
     Active Substance: HEPARIN SODIUM
     Dosage: RESUMED PRIOR TO TRANSPLANT; TOTAL HEPRIN TOTAL HEPARIN THERAPY DURATION WAS 25 DAYS
     Route: 042
  6. HEPARIN [Suspect]
     Active Substance: HEPARIN SODIUM
     Dosage: 40000 UNITS; DURING TRANSPLANT
     Route: 042

REACTIONS (4)
  - Pulmonary alveolar haemorrhage [Recovering/Resolving]
  - Post procedural haemorrhage [Recovering/Resolving]
  - Catheter site haemorrhage [Recovering/Resolving]
  - Ear haemorrhage [Recovering/Resolving]
